FAERS Safety Report 14598897 (Version 2)
Quarter: 2018Q2

REPORT INFORMATION
  Report Type: Report from Study
  Country: BE (occurrence: BE)
  Receive Date: 20180305
  Receipt Date: 20180508
  Transmission Date: 20180711
  Serious: Yes (Hospitalization)
  Sender: FDA-Public Use
  Company Number: BE-ROCHE-2077562

PATIENT
  Age: 72 Year
  Sex: Male

DRUGS (4)
  1. IXAZOMIB CITRATE [Suspect]
     Active Substance: IXAZOMIB CITRATE
     Indication: WALDENSTROM^S MACROGLOBULINAEMIA
     Dosage: DATE OF MOST RECENT DOSE OF IXAZOMIB CITRATE PRIOR TO SERIOUS ADVERAE EVENT (SAE) 13/FEB/2018.
     Route: 065
     Dates: start: 20180123
  2. RITUXIMAB. [Suspect]
     Active Substance: RITUXIMAB
     Indication: WALDENSTROM^S MACROGLOBULINAEMIA
     Dosage: DATE OF MOST RECENT DOSE OF RITUXIMAB PRIOR TO SERIOUS ADVERSE EVENT (SAE) 23/JAN/2018.
     Route: 058
     Dates: start: 20180123
  3. RITUXIMAB. [Suspect]
     Active Substance: RITUXIMAB
     Indication: WALDENSTROM^S MACROGLOBULINAEMIA
     Dosage: DATE OF MOST RECENT DOSE OF RITUXIMAB PRIOR TO SERIOUS ADVERSE EVENT (SAE) 04/OCT/2017.
     Route: 042
     Dates: start: 20171004
  4. DEXAMETHASONE. [Suspect]
     Active Substance: DEXAMETHASONE
     Indication: WALDENSTROM^S MACROGLOBULINAEMIA
     Dosage: DATE OF MOST RECENT DOSE OF DEXAMETHASONE PRIOR TO SERIOUS ADVERAE EVENT (SAE) 13/FEB/2018.
     Route: 065
     Dates: start: 20180123

REACTIONS (1)
  - Influenza [Recovered/Resolved]

NARRATIVE: CASE EVENT DATE: 20180217
